FAERS Safety Report 9979671 (Version 2)
Quarter: 2014Q1

REPORT INFORMATION
  Report Type: Report from Study
  Country: US (occurrence: US)
  Receive Date: 20140306
  Receipt Date: 20140306
  Transmission Date: 20141002
  Serious: Yes (Hospitalization, Other)
  Sender: FDA-Public Use
  Company Number: US-ABBVIE-13P-163-1148364-00

PATIENT
  Age: 59 Year
  Sex: Female

DRUGS (10)
  1. HUMIRA [Suspect]
     Indication: CROHN^S DISEASE
     Dates: start: 20110811, end: 20130328
  2. HUMIRA [Suspect]
     Dates: start: 201311
  3. BACLOFEN [Concomitant]
     Indication: MUSCLE RELAXANT THERAPY
  4. CELEXA [Concomitant]
     Indication: ANTIDEPRESSANT THERAPY
  5. CELEBREX [Concomitant]
     Indication: ARTHRITIS
  6. ZOCOR [Concomitant]
     Indication: BLOOD CHOLESTEROL
  7. NEURONTIN [Concomitant]
     Indication: NEUROPATHY PERIPHERAL
  8. OXYCONTIN [Concomitant]
     Indication: NECK PAIN
     Dosage: 2 TO 3 TIMES DAILY
  9. OXYCONTIN [Concomitant]
     Indication: SPINAL PAIN
  10. OVER THE COUNTER ALLERGY MEDICATION [Concomitant]
     Indication: SEASONAL ALLERGY

REACTIONS (8)
  - Hospitalisation [Not Recovered/Not Resolved]
  - Pneumonia [Unknown]
  - Sepsis [Unknown]
  - Hypotension [Unknown]
  - Pain in extremity [Unknown]
  - Oedema peripheral [Unknown]
  - Nasopharyngitis [Not Recovered/Not Resolved]
  - Diarrhoea [Not Recovered/Not Resolved]
